FAERS Safety Report 5775244-7 (Version None)
Quarter: 2008Q2

REPORT INFORMATION
  Report Type: 
  Country: None (occurrence: None)
  Receive Date: 20080612
  Receipt Date: 20080605
  Transmission Date: 20081010
  Serious: Yes (Other)
  Sender: FDA-Public Use
  Company Number: E2090-00480-SPO-FR

PATIENT
  Sex: Male

DRUGS (2)
  1. ZONEGRAN [Suspect]
     Indication: EPILEPSY
     Dosage: 200-300 MG DAILY, ORAL
     Route: 048
  2. SEVERAL ANTIEPILEPTIC DRUGS (ANTIEPILEPTICS) [Concomitant]

REACTIONS (1)
  - NEPHROLITHIASIS [None]
